FAERS Safety Report 11315344 (Version 2)
Quarter: 2015Q4

REPORT INFORMATION
  Report Type: Report from Study
  Country: FR (occurrence: FR)
  Receive Date: 20150727
  Receipt Date: 20151015
  Transmission Date: 20160304
  Serious: Yes (Hospitalization)
  Sender: FDA-Public Use
  Company Number: PHHY2013FR123086

PATIENT
  Age: 65 Year
  Sex: Female

DRUGS (4)
  1. CELLCEPT [Suspect]
     Active Substance: MYCOPHENOLATE MOFETIL\MYCOPHENOLATE MOFETIL HYDROCHLORIDE
     Indication: IMMUNOSUPPRESSION
     Dosage: 500 MG, BID
     Route: 065
     Dates: start: 20120628
  2. NEORAL [Suspect]
     Active Substance: CYCLOSPORINE
     Indication: IMMUNOSUPPRESSION
     Dosage: 60 MG, BID
     Route: 048
     Dates: start: 20120628, end: 20140307
  3. ADVAGRAF [Suspect]
     Active Substance: TACROLIMUS
     Indication: IMMUNOSUPPRESSION
     Dosage: 1.5 MG, BID
     Route: 048
     Dates: start: 20120628
  4. SOLU-PRED [Suspect]
     Active Substance: METHYLPREDNISOLONE
     Indication: IMMUNOSUPPRESSION
     Dosage: 10 MG, QD
     Route: 048
     Dates: start: 20120629

REACTIONS (10)
  - Renal impairment [Recovered/Resolved]
  - Pyelonephritis [Recovered/Resolved]
  - Oedema [Recovered/Resolved]
  - Polyarthritis [Recovered/Resolved]
  - Pyelonephritis acute [Recovered/Resolved]
  - Condition aggravated [Recovered/Resolved]
  - Gouty arthritis [Recovered/Resolved]
  - Renal impairment [Recovered/Resolved]
  - Pyelonephritis acute [Recovered/Resolved]
  - Acute kidney injury [Recovered/Resolved]

NARRATIVE: CASE EVENT DATE: 20130727
